FAERS Safety Report 21823578 (Version 1)
Quarter: 2023Q1

REPORT INFORMATION
  Report Type: Report from Study
  Country: US (occurrence: US)
  Receive Date: 20230105
  Receipt Date: 20230105
  Transmission Date: 20230417
  Serious: Yes (Other)
  Sender: FDA-Public Use
  Company Number: US-ORPHANEU-2023000011

PATIENT

DRUGS (4)
  1. CARBAGLU [Suspect]
     Active Substance: CARGLUMIC ACID
     Indication: Urea cycle disorder
     Dosage: 600 MILLIGRAM, QID
     Route: 048
  2. CARBAGLU [Suspect]
     Active Substance: CARGLUMIC ACID
     Dosage: 800 MILLIGRAM, QID
     Route: 048
  3. RIFAXIMIN [Suspect]
     Active Substance: RIFAXIMIN
     Indication: Gastrointestinal disorder
     Dosage: 7 DAYS COURSE
  4. INSULIN NOS [Concomitant]
     Active Substance: INSULIN NOS
     Indication: Type 1 diabetes mellitus
     Dosage: PUMP

REACTIONS (2)
  - Blood glucose decreased [Unknown]
  - Gastrointestinal disorder [Unknown]
